FAERS Safety Report 5214102-3 (Version None)
Quarter: 2007Q1

REPORT INFORMATION
  Report Type: 
  Country: None (occurrence: None)
  Receive Date: 20070117
  Receipt Date: 20070102
  Transmission Date: 20070707
  Serious: Yes (Other)
  Sender: FDA-Public Use
  Company Number: US-1160216

PATIENT
  Sex: 0

DRUGS (1)
  1. SYSTANE FREE LUBRICANT [Suspect]
     Indication: DRY EYE
     Dosage: OPHTHALMIC
     Route: 047

REACTIONS (1)
  - ENDOPHTHALMITIS [None]
